FAERS Safety Report 7597175-2 (Version None)
Quarter: 2011Q3

REPORT INFORMATION
  Report Type: 
  Country: None (occurrence: None)
  Receive Date: 20110708
  Receipt Date: 20100712
  Transmission Date: 20111222
  Serious: No
  Sender: FDA-Public Use
  Company Number: US-GLAXOSMITHKLINE-A0869723A

PATIENT
  Age: 77 Year
  Sex: Female

DRUGS (2)
  1. FLOVENT [Suspect]
     Indication: BRONCHIAL DISORDER
     Dosage: 2PUFF PER DAY
     Route: 055
  2. MULTIPLE MEDICATIONS [Concomitant]

REACTIONS (3)
  - SWOLLEN TONGUE [None]
  - FEELING HOT [None]
  - HOT FLUSH [None]
